FAERS Safety Report 5334383-5 (Version None)
Quarter: 2007Q2

REPORT INFORMATION
  Report Type: 
  Country: None (occurrence: None)
  Receive Date: 20070525
  Receipt Date: 20070504
  Transmission Date: 20071010
  Serious: Yes (Death)
  Sender: FDA-Public Use
  Company Number: NO-BRISTOL-MYERS SQUIBB COMPANY-13790472

PATIENT
  Age: 44 Year
  Sex: Male

DRUGS (2)
  1. SENDOXAN [Suspect]
     Indication: MULTIPLE MYELOMA
     Dates: start: 20070223, end: 20070223
  2. DEXAMETHASONE 0.5MG TAB [Concomitant]
     Indication: MULTIPLE MYELOMA
     Dates: start: 20070223

REACTIONS (5)
  - BLOOD PRESSURE DECREASED [None]
  - HEART RATE DECREASED [None]
  - HEPATIC FAILURE [None]
  - MULTI-ORGAN FAILURE [None]
  - RENAL FAILURE [None]
